FAERS Safety Report 13818369 (Version 1)
Quarter: 2017Q3

REPORT INFORMATION
  Report Type: Spontaneous
  Country: US (occurrence: US)
  Receive Date: 20170731
  Receipt Date: 20170731
  Transmission Date: 20171127
  Serious: No
  Sender: FDA-Public Use
  Company Number: US-ROCHE-700421

PATIENT
  Age: 76 Year
  Sex: Female
  Weight: 62.7 kg

DRUGS (9)
  1. METOPROLOL. [Concomitant]
     Active Substance: METOPROLOL
     Route: 065
  2. LUTEIN [Concomitant]
     Active Substance: LUTEIN
     Dosage: DRUG; LUTEINE
     Route: 065
  3. OS-CAL +D [Concomitant]
     Dosage: DRUG: OSCAL WITH VITAMIN D.
     Route: 065
  4. BABY ASA [Concomitant]
     Active Substance: ASPIRIN
     Dosage: DRUG REPORTED AS: BABY ASPIRIN.
     Route: 065
  5. VITAMIN B [Concomitant]
     Active Substance: VITAMIN B
     Route: 065
  6. BONIVA [Suspect]
     Active Substance: IBANDRONATE SODIUM
     Indication: OSTEOPOROSIS
     Route: 065
  7. CIPRO [Concomitant]
     Active Substance: CIPROFLOXACIN HYDROCHLORIDE
     Route: 065
  8. TYLENOL [Concomitant]
     Active Substance: ACETAMINOPHEN
     Route: 065
  9. MAGNESIUM [Concomitant]
     Active Substance: MAGNESIUM
     Route: 065

REACTIONS (2)
  - Vitamin D decreased [Unknown]
  - Pain [Unknown]
